FAERS Safety Report 9418002 (Version 3)
Quarter: 2013Q4

REPORT INFORMATION
  Report Type: Spontaneous
  Country: PT (occurrence: PT)
  Receive Date: 20130724
  Receipt Date: 20131206
  Transmission Date: 20140711
  Serious: Yes (Hospitalization)
  Sender: FDA-Public Use
  Company Number: PT-B.I. PHARMACEUTICALS,INC./RIDGEFIELD-2013-BI-21300PO

PATIENT
  Age: 74 Year
  Sex: Female

DRUGS (4)
  1. PRADAXA [Suspect]
     Indication: ATRIAL FIBRILLATION
     Dosage: 300 MG
     Route: 048
  2. PRADAXA [Suspect]
     Dosage: 220 MG
     Route: 048
     Dates: start: 201306
  3. CLOPIDOGREL [Concomitant]
     Indication: THROMBOSIS PROPHYLAXIS
     Dosage: 30 MG
  4. LIPITOR (STATIN) [Concomitant]

REACTIONS (6)
  - Blood glucose increased [Unknown]
  - Haemorrhoidal haemorrhage [Unknown]
  - Nervousness [Unknown]
  - Anxiety [Unknown]
  - Feeling abnormal [Unknown]
  - Muscle twitching [Unknown]
